FAERS Safety Report 4607721-6 (Version None)
Quarter: 2005Q1

REPORT INFORMATION
  Report Type: 
  Country: None (occurrence: None)
  Receive Date: 20050310
  Receipt Date: 20050308
  Transmission Date: 20050727
  Serious: No
  Sender: FDA-Public Use
  Company Number: A044-002-005507

PATIENT
  Age: 72 Year
  Sex: Female
  Weight: 60 kg

DRUGS (4)
  1. ARICEPT [Suspect]
     Dosage: 5 MG, 1 IN 1 D, ORAL
     Route: 048
     Dates: end: 20050220
  2. ASPIRIN [Concomitant]
  3. SIMVASTATIN [Concomitant]
  4. TENORETIC (TENORETIC) [Concomitant]

REACTIONS (2)
  - CIRCULATORY COLLAPSE [None]
  - VENTRICULAR EXTRASYSTOLES [None]
